FAERS Safety Report 11949380 (Version 1)
Quarter: 2016Q1

REPORT INFORMATION
  Report Type: Spontaneous
  Country: RS (occurrence: RS)
  Receive Date: 20160125
  Receipt Date: 20160125
  Transmission Date: 20160526
  Serious: Yes (Death)
  Sender: FDA-Public Use
  Company Number: RS-IMPAX LABORATORIES, INC-2016-IPXL-00045

PATIENT
  Age: 24 Year
  Sex: Female

DRUGS (3)
  1. GLICLAZIDE [Suspect]
     Active Substance: GLICLAZIDE
     Indication: POISONING DELIBERATE
     Dosage: 2.4 G (30 TABLETS)
     Route: 048
  2. AMLODIPINE [Suspect]
     Active Substance: AMLODIPINE BESYLATE
     Indication: POISONING DELIBERATE
     Dosage: 150 MG (30 TABLETS)
     Route: 048
  3. METFORMIN HYDROCHLORIDE ER [Suspect]
     Active Substance: METFORMIN HYDROCHLORIDE
     Indication: POISONING DELIBERATE
     Dosage: 10 G (20 TABLETS)
     Route: 048

REACTIONS (6)
  - Metabolic acidosis [Fatal]
  - Toxicity to various agents [Fatal]
  - Cardiac arrest [Fatal]
  - Bundle branch block right [Fatal]
  - Atrioventricular block first degree [Fatal]
  - Hyperglycaemia [Fatal]
